FAERS Safety Report 15367772 (Version 1)
Quarter: 2018Q3

REPORT INFORMATION
  Report Type: Spontaneous
  Country: US (occurrence: US)
  Receive Date: 20180904
  Receipt Date: 20180904
  Transmission Date: 20181010
  Serious: Yes (Disabling, Other)
  Sender: FDA-Public Use
  Company Number: None

PATIENT
  Age: 54 Year
  Sex: Female
  Weight: 78.75 kg

DRUGS (20)
  1. BYSTOLIC [Concomitant]
     Active Substance: NEBIVOLOL HYDROCHLORIDE
  2. HYDROCODINE [Concomitant]
  3. PREDNISONE. [Concomitant]
     Active Substance: PREDNISONE
  4. METHACARBOMOL [Concomitant]
  5. ISOVUE 370 [Suspect]
     Active Substance: IOPAMIDOL
     Indication: SCAN WITH CONTRAST
     Dosage: ?          QUANTITY:100 INJECTION(S);?
     Route: 042
     Dates: start: 20131212, end: 20131212
  6. XELJANZ [Concomitant]
     Active Substance: TOFACITINIB CITRATE
  7. TRAMADOL. [Concomitant]
     Active Substance: TRAMADOL
  8. EXCEDRIN [Concomitant]
     Active Substance: ACETAMINOPHEN\ASPIRIN\CAFFEINE
  9. EXCEDRIN [Concomitant]
     Active Substance: ACETAMINOPHEN\ASPIRIN\CAFFEINE
  10. AMBIEN [Concomitant]
     Active Substance: ZOLPIDEM TARTRATE
  11. CELEBREX [Concomitant]
     Active Substance: CELECOXIB
  12. SALINE NASAL SPRAY [Concomitant]
     Active Substance: SODIUM CHLORIDE
  13. LORAZAPAM [Concomitant]
     Active Substance: LORAZEPAM
  14. CYMBALTA [Concomitant]
     Active Substance: DULOXETINE HYDROCHLORIDE
  15. GASTROGRAFIN [Suspect]
     Active Substance: DIATRIZOATE MEGLUMINE\DIATRIZOATE SODIUM
     Indication: SCAN WITH CONTRAST
     Route: 048
     Dates: start: 20131212, end: 20131212
  16. LOVAZA [Concomitant]
     Active Substance: OMEGA-3-ACID ETHYL ESTERS
  17. ARMOUR THYROID [Concomitant]
     Active Substance: THYROID, PORCINE
  18. PANTOPROZOL [Concomitant]
  19. ARMONOFIL [Concomitant]
  20. AFRIN [Concomitant]
     Active Substance: OXYMETAZOLINE

REACTIONS (6)
  - Blindness transient [None]
  - Scar [None]
  - Iridocyclitis [None]
  - Blindness [None]
  - Photophobia [None]
  - Ocular hyperaemia [None]

NARRATIVE: CASE EVENT DATE: 20131212
